FAERS Safety Report 7125422-X (Version None)
Quarter: 2010Q4

REPORT INFORMATION
  Report Type: 
  Country: None (occurrence: None)
  Receive Date: 20101129
  Receipt Date: 20101118
  Transmission Date: 20110411
  Serious: Yes (Hospitalization, Other)
  Sender: FDA-Public Use
  Company Number: US-ROCHE-722771

PATIENT
  Sex: Male
  Weight: 90.7 kg

DRUGS (3)
  1. ACCUTANE [Suspect]
     Indication: ACNE
     Route: 065
     Dates: start: 19820601, end: 19821001
  2. ASPIRIN [Concomitant]
  3. IBUPROFEN [Concomitant]

REACTIONS (5)
  - COLITIS ULCERATIVE [None]
  - DEEP VEIN THROMBOSIS [None]
  - GASTROINTESTINAL INJURY [None]
  - NEPHROLITHIASIS [None]
  - PULMONARY EMBOLISM [None]
